FAERS Safety Report 22191999 (Version 1)
Quarter: 2023Q2

REPORT INFORMATION
  Report Type: Spontaneous
  Country: ES (occurrence: ES)
  Receive Date: 20230410
  Receipt Date: 20230410
  Transmission Date: 20230721
  Serious: Yes (Other)
  Sender: FDA-Public Use
  Company Number: None

PATIENT
  Age: 47 Year
  Sex: Male

DRUGS (2)
  1. RINVOQ [Suspect]
     Active Substance: UPADACITINIB
     Indication: Atopy
     Route: 048
     Dates: start: 20221130, end: 20230119
  2. DUPIXENT [Concomitant]
     Active Substance: DUPILUMAB
     Indication: Atopy
     Dosage: 300 MG SOLUCION INYECTABLE EN PLUMA PRECARGADA
     Route: 058
     Dates: start: 20210129, end: 20221125

REACTIONS (1)
  - Pustular psoriasis [Recovering/Resolving]

NARRATIVE: CASE EVENT DATE: 20230119
